FAERS Safety Report 8118885-4 (Version None)
Quarter: 2012Q1

REPORT INFORMATION
  Report Type: 
  Country: None (occurrence: None)
  Receive Date: 20120202
  Receipt Date: 20120119
  Transmission Date: 20120608
  Serious: Yes (Other)
  Sender: FDA-Public Use
  Company Number: 2012-0139

PATIENT
  Sex: Female

DRUGS (1)
  1. SOMATULINE DEPOT [Suspect]
     Indication: NEUROENDOCRINE TUMOUR
     Dosage: 120 MG (120MG, 1 IN 4 WK),
     Dates: start: 20110701

REACTIONS (10)
  - SWELLING FACE [None]
  - COLD SWEAT [None]
  - ABDOMINAL PAIN [None]
  - PALLOR [None]
  - PULSE PRESSURE DECREASED [None]
  - BLOOD PRESSURE DECREASED [None]
  - RESTLESSNESS [None]
  - UNEVALUABLE EVENT [None]
  - DEPRESSED LEVEL OF CONSCIOUSNESS [None]
  - HEART RATE INCREASED [None]
